FAERS Safety Report 8904335 (Version 2)
Quarter: 2012Q4

REPORT INFORMATION
  Report Type: 
  Country: ES (occurrence: ES)
  Receive Date: 20121112
  Receipt Date: 20121130
  Transmission Date: 20130627
  Serious: Yes (Other)
  Sender: FDA-Public Use
  Company Number: ES-GILEAD-2012-0064345

PATIENT
  Age: 44 Year
  Sex: Male

DRUGS (11)
  1. VIREAD [Suspect]
     Indication: HIV INFECTION
     Dosage: 300 mg, QD
     Dates: start: 2004
  2. VIREAD [Suspect]
     Dosage: UNK
  3. EMTRIVA [Suspect]
     Indication: HIV INFECTION
  4. LOPINAVIR W/RITONAVIR [Concomitant]
     Indication: HIV INFECTION
     Dosage: 500 mg, BID
     Dates: start: 2004
  5. LOPINAVIR W/RITONAVIR [Concomitant]
     Dosage: UNK
  6. LAMIVUDINE [Concomitant]
     Indication: HIV INFECTION
     Dosage: 300 mg, QD
     Dates: start: 2004
  7. ETHAMBUTOL [Concomitant]
     Indication: TUBERCULOSIS
     Dosage: 20 mg/kg, QD
     Route: 048
  8. PIRAZINAMIDA [Concomitant]
     Indication: TUBERCULOSIS
     Dosage: 30 mg/kg, QD
     Route: 048
  9. STREPTOMYCIN [Concomitant]
     Indication: TUBERCULOSIS
     Dosage: 1 g, QD
     Route: 030
  10. ISONIAZID [Concomitant]
     Indication: TUBERCULOSIS
     Dosage: 300 mg, QD
     Route: 048
  11. COTRIMOXAZOLE [Concomitant]
     Indication: PROPHYLAXIS
     Route: 048

REACTIONS (1)
  - Immune reconstitution inflammatory syndrome associated tuberculosis [Recovered/Resolved]
